FAERS Safety Report 5919065-0 (Version None)
Quarter: 2008Q4

REPORT INFORMATION
  Report Type: 
  Country: None (occurrence: None)
  Receive Date: 20081015
  Receipt Date: 20081001
  Transmission Date: 20090506
  Serious: Yes (Other)
  Sender: FDA-Public Use
  Company Number: US-GENENTECH-264252

PATIENT
  Sex: Female

DRUGS (5)
  1. BEVACIZUMAB [Suspect]
     Indication: BREAST CANCER
     Dosage: 10 MG/KG, Q14D
     Route: 042
     Dates: start: 20060921
  2. TAXOL [Suspect]
     Indication: BREAST CANCER
     Dosage: 175 MG/M2, Q14D
     Route: 042
     Dates: start: 20060921
  3. NEULASTA [Suspect]
     Indication: BREAST CANCER
     Dosage: 6 MG, Q2W
     Route: 058
     Dates: start: 20060727
  4. DOXORUBICIN HCL [Suspect]
     Indication: BREAST CANCER
     Dosage: 60 MG/M2, Q14D
     Route: 042
     Dates: start: 20060727
  5. CYCLOPHOSPHAMIDE [Suspect]
     Indication: DRUG USE FOR UNKNOWN INDICATION
     Dosage: 600 MG/M2, Q14D
     Route: 042
     Dates: start: 20060727

REACTIONS (1)
  - MYALGIA [None]
